FAERS Safety Report 9970387 (Version 5)
Quarter: 2014Q2

REPORT INFORMATION
  Report Type: Spontaneous
  Country: US (occurrence: None)
  Receive Date: 20140304
  Receipt Date: 20140512
  Transmission Date: 20141212
  Serious: Yes (Disabling, Other)
  Sender: FDA-Public Use
  Company Number: 1402-0402

PATIENT
  Age: 84 Year
  Sex: Male

DRUGS (4)
  1. EYLEA [Suspect]
     Indication: AGE-RELATED MACULAR DEGENERATION
     Dosage: INTRAVITREAL
     Route: 031
     Dates: start: 20120525, end: 20140224
  2. EYLEA [Suspect]
     Dosage: INTRAVITREAL
     Route: 031
     Dates: start: 20120525, end: 20140224
  3. TIMOLOL (TIMOLOL) (NONE) [Concomitant]
  4. XALATAN (LANTOPROST) [Concomitant]

REACTIONS (5)
  - Endophthalmitis [None]
  - Visual acuity reduced [None]
  - Blindness unilateral [None]
  - Vision blurred [None]
  - Blindness transient [None]
